FAERS Safety Report 8107002-2 (Version None)
Quarter: 2012Q1

REPORT INFORMATION
  Report Type: 
  Country: None (occurrence: None)
  Receive Date: 20120202
  Receipt Date: 20120202
  Transmission Date: 20120608
  Serious: Yes (Other)
  Sender: FDA-Public Use
  Company Number: None

PATIENT
  Age: 32 Year
  Sex: Female
  Weight: 52.616 kg

DRUGS (1)
  1. LO/OVRAL [Suspect]
     Indication: POLYCYSTIC OVARIES
     Route: 048
     Dates: start: 20111120, end: 20120201

REACTIONS (5)
  - PRODUCT QUALITY ISSUE [None]
  - BREAST TENDERNESS [None]
  - MUSCLE SPASMS [None]
  - MENSTRUAL DISORDER [None]
  - MOOD SWINGS [None]
